FAERS Safety Report 4823650-7 (Version None)
Quarter: 2005Q4

REPORT INFORMATION
  Report Type: 
  Country: None (occurrence: None)
  Receive Date: 20051109
  Receipt Date: 20051031
  Transmission Date: 20060501
  Serious: Yes (Hospitalization)
  Sender: FDA-Public Use
  Company Number: FR-GLAXOSMITHKLINE-B0399094A

PATIENT
  Age: 89 Year
  Sex: Female

DRUGS (3)
  1. AUGMENTIN '125' [Suspect]
     Dosage: 1G THREE TIMES PER DAY
     Route: 048
     Dates: start: 20050524, end: 20050627
  2. DALACINE [Concomitant]
     Indication: INFECTION
     Dosage: 600MG THREE TIMES PER DAY
     Dates: start: 20050530, end: 20050621
  3. PENICILLIN [Concomitant]
     Dosage: 5MG FOUR TIMES PER DAY
     Dates: start: 20050530, end: 20050621

REACTIONS (4)
  - ERYTHEMA [None]
  - LEUKOCYTOCLASTIC VASCULITIS [None]
  - PURPURA [None]
  - RASH SCARLATINIFORM [None]
